FAERS Safety Report 9192233 (Version 2)
Quarter: 2013Q2

REPORT INFORMATION
  Report Type: Spontaneous
  Country: US (occurrence: US)
  Receive Date: 20130327
  Receipt Date: 20130508
  Transmission Date: 20140414
  Serious: Yes (Other)
  Sender: FDA-Public Use
  Company Number: US-BAYER-2013-035928

PATIENT
  Age: 37 Year
  Sex: Female

DRUGS (1)
  1. MIRENA [Suspect]
     Indication: CONTRACEPTION
     Dosage: 20 MCG/24HR, CONT
     Route: 015
     Dates: start: 20071121

REACTIONS (6)
  - Device dislocation [Not Recovered/Not Resolved]
  - Device difficult to use [None]
  - Device misuse [Not Recovered/Not Resolved]
  - Device difficult to use [None]
  - Uterine cervix stenosis [None]
  - Cervical dysplasia [None]
